FAERS Safety Report 17911797 (Version 6)
Quarter: 2022Q4

REPORT INFORMATION
  Report Type: Spontaneous
  Country: US (occurrence: US)
  Receive Date: 20200618
  Receipt Date: 20221128
  Transmission Date: 20230113
  Serious: No
  Sender: FDA-Public Use
  Company Number: US-PFIZER INC-2020237178

PATIENT
  Age: 82 Year
  Sex: Female
  Weight: 70.31 kg

DRUGS (2)
  1. IBRANCE [Suspect]
     Active Substance: PALBOCICLIB
     Indication: Breast cancer female
     Dosage: 100 MG, 1X/DAY (AFTER FOOD)
     Route: 048
     Dates: start: 201910
  2. IBRANCE [Suspect]
     Active Substance: PALBOCICLIB
     Dosage: 75 MG

REACTIONS (4)
  - Fatigue [Unknown]
  - Dry mouth [Unknown]
  - Product use complaint [Unknown]
  - Product physical issue [Unknown]
